FAERS Safety Report 4518283-6 (Version None)
Quarter: 2004Q4

REPORT INFORMATION
  Report Type: 
  Country: None (occurrence: None)
  Receive Date: 20041202
  Receipt Date: 20041117
  Transmission Date: 20050328
  Serious: Yes (Disabling)
  Sender: FDA-Public Use
  Company Number: 2004BI000017

PATIENT
  Age: 44 Year
  Sex: Female
  Weight: 65.7716 kg

DRUGS (2)
  1. AVONEX [Suspect]
     Indication: MULTIPLE SCLEROSIS
     Dosage: 30  UG; BIW; IM
     Route: 030
     Dates: start: 19980101, end: 20030101
  2. AVONEX [Suspect]
     Indication: MULTIPLE SCLEROSIS
     Dosage: 30  UG; BIW; IM
     Route: 030
     Dates: start: 20030101, end: 20041104

REACTIONS (4)
  - BLINDNESS [None]
  - CONDITION AGGRAVATED [None]
  - DRUG INEFFECTIVE [None]
  - DYSKINESIA [None]
